FAERS Safety Report 5672467-2 (Version None)
Quarter: 2008Q1

REPORT INFORMATION
  Report Type: 
  Country: None (occurrence: None)
  Receive Date: 20080319
  Receipt Date: 20080312
  Transmission Date: 20080703
  Serious: Yes (Other)
  Sender: FDA-Public Use
  Company Number: US-JNJFOC-20080303595

PATIENT
  Sex: Female
  Weight: 79.38 kg

DRUGS (2)
  1. FENTANYL TRANSDERMAL SYSTEM [Suspect]
     Indication: SPINAL FRACTURE
     Route: 062
  2. ANTIHYPERTENSIVE DRUG [Concomitant]
     Indication: HYPERTENSION

REACTIONS (4)
  - BACK INJURY [None]
  - FALL [None]
  - HYPERTENSION [None]
  - LOSS OF CONSCIOUSNESS [None]
